FAERS Safety Report 16430107 (Version 2)
Quarter: 2019Q3

REPORT INFORMATION
  Report Type: Spontaneous
  Country: US (occurrence: US)
  Receive Date: 20190614
  Receipt Date: 20190808
  Transmission Date: 20191004
  Serious: No
  Sender: FDA-Public Use
  Company Number: US-TEVA-2019-US-1053229

PATIENT
  Sex: Female

DRUGS (1)
  1. EQ MICONAZOLE 3 [Suspect]
     Active Substance: MICONAZOLE
     Indication: URINARY TRACT INFECTION
     Route: 065

REACTIONS (2)
  - Drug ineffective [Unknown]
  - Condition aggravated [Unknown]
